FAERS Safety Report 12339079 (Version 1)
Quarter: 2016Q2

REPORT INFORMATION
  Report Type: Spontaneous
  Country: None (occurrence: US)
  Receive Date: 20160505
  Receipt Date: 20160505
  Transmission Date: 20160815
  Serious: No
  Sender: FDA-Public Use
  Company Number: US-MAYNE PHARMA-2015MYN000063

PATIENT
  Age: 64 Year
  Sex: Female

DRUGS (4)
  1. LIOTHYRONINE [Suspect]
     Active Substance: LIOTHYRONINE
     Indication: HYPOTHYROIDISM
     Dosage: 25 ?G, QD (2 TABLETS IN MORNING AND 3 TABLETS IN EVENING)
     Route: 048
     Dates: start: 2015, end: 2015
  2. LIOTHYRONINE [Suspect]
     Active Substance: LIOTHYRONINE
     Dosage: 25 ?G, QD (2 TABLETS IN MORNING AND 3 TABLETS IN EVENING)
     Route: 048
     Dates: start: 2015, end: 2015
  3. SYNTHROID [Concomitant]
     Active Substance: LEVOTHYROXINE SODIUM
     Dosage: 50 ?G, QD
     Dates: start: 201509
  4. SYNTHROID [Concomitant]
     Active Substance: LEVOTHYROXINE SODIUM
     Dosage: 75 MCG, QD

REACTIONS (6)
  - Abasia [Recovered/Resolved]
  - Arthralgia [Recovered/Resolved]
  - Swelling face [Recovered/Resolved]
  - Malaise [Unknown]
  - Limb discomfort [Recovered/Resolved]
  - Fluid retention [Recovered/Resolved]
